FAERS Safety Report 25686685 (Version 1)
Quarter: 2025Q3

REPORT INFORMATION
  Report Type: Spontaneous
  Country: US (occurrence: US)
  Receive Date: 20250816
  Receipt Date: 20250816
  Transmission Date: 20251021
  Serious: Yes (Other)
  Sender: ROCHE
  Company Number: US-ROCHE-10000365254

PATIENT
  Age: 63 Year
  Sex: Female

DRUGS (4)
  1. XOLAIR [Suspect]
     Active Substance: OMALIZUMAB
     Indication: Idiopathic urticaria
     Dosage: STRENNGTH:150MG/ML
     Route: 058
     Dates: start: 201907
  2. XOLAIR [Suspect]
     Active Substance: OMALIZUMAB
  3. PRIVIGEN [Concomitant]
     Active Substance: HUMAN IMMUNOGLOBULIN G
  4. CYCLOSPORINE [Concomitant]
     Active Substance: CYCLOSPORINE

REACTIONS (1)
  - Anaphylactic reaction [Unknown]

NARRATIVE: CASE EVENT DATE: 20250723
